FAERS Safety Report 4299981-9 (Version None)
Quarter: 2004Q1

REPORT INFORMATION
  Report Type: 
  Country: None (occurrence: None)
  Receive Date: 20040218
  Receipt Date: 20040202
  Transmission Date: 20041129
  Serious: Yes (Death, Other)
  Sender: FDA-Public Use
  Company Number: GBS040214387

PATIENT
  Age: 55 Year
  Sex: Female
  Weight: 58 kg

DRUGS (6)
  1. XIGRIS [Suspect]
     Indication: DISSEMINATED INTRAVASCULAR COAGULATION
     Dosage: 40 MG/24HR/OTHER
     Dates: start: 20040114, end: 20040115
  2. XIGRIS [Suspect]
     Indication: MULTI-ORGAN FAILURE
     Dosage: 40 MG/24HR/OTHER
     Dates: start: 20040114, end: 20040115
  3. XIGRIS [Suspect]
     Indication: SEPSIS
     Dosage: 40 MG/24HR/OTHER
     Dates: start: 20040114, end: 20040115
  4. CEFTRIAXONE [Concomitant]
  5. HYDROCORTISONE [Concomitant]
  6. RANITIDINE [Concomitant]

REACTIONS (3)
  - C-REACTIVE PROTEIN INCREASED [None]
  - CEREBRAL HAEMORRHAGE [None]
  - PLATELET COUNT DECREASED [None]
